FAERS Safety Report 25901230 (Version 2)
Quarter: 2025Q4

REPORT INFORMATION
  Report Type: Spontaneous
  Country: EU (occurrence: EU)
  Receive Date: 20251009
  Receipt Date: 20251028
  Transmission Date: 20260118
  Serious: Yes (Hospitalization)
  Sender: PFIZER
  Company Number: None

PATIENT
  Age: 3 Month
  Sex: Male
  Weight: 4.5 kg

DRUGS (2)
  1. MEROPENEM [Suspect]
     Active Substance: MEROPENEM
     Indication: Pseudomonas infection
     Dosage: UNK
     Route: 042
     Dates: start: 20250911, end: 20250919
  2. CIPROFLOXACIN HYDROGEN SULFATE [Suspect]
     Active Substance: CIPROFLOXACIN HYDROGEN SULFATE
     Indication: Pseudomonas infection
     Dosage: 90 MG, EVERY 12 HOURS (200 MG/100 ML, SOLUTION FOR PERFUSION)
     Route: 042
     Dates: start: 20250911, end: 20250913

REACTIONS (2)
  - Hepatic cytolysis [Recovering/Resolving]
  - Jaundice cholestatic [Recovering/Resolving]

NARRATIVE: CASE EVENT DATE: 20250913
